FAERS Safety Report 13660831 (Version 1)
Quarter: 2017Q2

REPORT INFORMATION
  Report Type: Spontaneous
  Country: GB (occurrence: GB)
  Receive Date: 20170616
  Receipt Date: 20170616
  Transmission Date: 20170830
  Serious: Yes (Other)
  Sender: FDA-Public Use
  Company Number: GB-FRESENIUS KABI-FK201705158

PATIENT
  Age: 52 Year

DRUGS (9)
  1. CYCLOPHOSPHAMIDE. [Suspect]
     Active Substance: CYCLOPHOSPHAMIDE
     Indication: PRODUCT USED FOR UNKNOWN INDICATION
  2. CYTARABINE. [Suspect]
     Active Substance: CYTARABINE
     Indication: PRODUCT USED FOR UNKNOWN INDICATION
  3. METHYLPREDNISOLONE. [Suspect]
     Active Substance: METHYLPREDNISOLONE
     Indication: PRODUCT USED FOR UNKNOWN INDICATION
  4. PREDNISOLONE. [Suspect]
     Active Substance: PREDNISOLONE
     Indication: PRODUCT USED FOR UNKNOWN INDICATION
  5. RITUXIMAB [Suspect]
     Active Substance: RITUXIMAB
     Indication: PRODUCT USED FOR UNKNOWN INDICATION
  6. CAELYX [Suspect]
     Active Substance: DOXORUBICIN HYDROCHLORIDE
     Indication: PRODUCT USED FOR UNKNOWN INDICATION
  7. VINCRISTINE [Suspect]
     Active Substance: VINCRISTINE
     Indication: PRODUCT USED FOR UNKNOWN INDICATION
  8. ETOPOSIDE (MANUFACTURER UNKNOWN) [Suspect]
     Active Substance: ETOPOSIDE
     Indication: MANTLE CELL LYMPHOMA
     Route: 065
  9. CISPLATIN (MANUFACTURER UNKNOWN) [Suspect]
     Active Substance: CISPLATIN
     Indication: MANTLE CELL LYMPHOMA
     Route: 065

REACTIONS (4)
  - Product use in unapproved indication [Unknown]
  - Off label use [Unknown]
  - Mantle cell lymphoma recurrent [Unknown]
  - Abdominal pain [Recovering/Resolving]
